FAERS Safety Report 10354768 (Version 1)
Quarter: 2014Q3

REPORT INFORMATION
  Report Type: Report from Study
  Country: ES (occurrence: ES)
  Receive Date: 20140731
  Receipt Date: 20140731
  Transmission Date: 20150326
  Serious: Yes (Life-Threatening, Hospitalization)
  Sender: FDA-Public Use
  Company Number: ES-SA-2014SA101292

PATIENT
  Age: 52 Year
  Sex: Male

DRUGS (6)
  1. IRBESARTAN. [Interacting]
     Active Substance: IRBESARTAN
     Indication: INTENTIONAL OVERDOSE
     Route: 048
     Dates: start: 20130705, end: 20130705
  2. BISOPROLOL [Interacting]
     Active Substance: BISOPROLOL
     Indication: INTENTIONAL OVERDOSE
     Route: 048
     Dates: start: 20130705, end: 20130705
  3. SEGURIL [Suspect]
     Active Substance: FUROSEMIDE
     Indication: INTENTIONAL OVERDOSE
     Route: 048
     Dates: start: 20130705, end: 20130705
  4. GABAPENTIN. [Interacting]
     Active Substance: GABAPENTIN
     Indication: INTENTIONAL OVERDOSE
     Route: 048
     Dates: start: 20130705, end: 20130705
  5. LORAZEPAM. [Interacting]
     Active Substance: LORAZEPAM
     Indication: INTENTIONAL OVERDOSE
     Route: 048
     Dates: start: 20130705, end: 20130705
  6. PHENYTOIN. [Interacting]
     Active Substance: PHENYTOIN
     Indication: INTENTIONAL OVERDOSE
     Route: 048
     Dates: start: 20130705, end: 20130705

REACTIONS (4)
  - Drug interaction [Unknown]
  - Intentional overdose [Recovered/Resolved]
  - Hypotension [Recovered/Resolved]
  - Depressed level of consciousness [Recovered/Resolved]

NARRATIVE: CASE EVENT DATE: 20130705
